FAERS Safety Report 17102773 (Version 2)
Quarter: 2020Q1

REPORT INFORMATION
  Report Type: Report from Study
  Country: None (occurrence: US)
  Receive Date: 20191203
  Receipt Date: 20200103
  Transmission Date: 20200409
  Serious: Yes (Hospitalization, Other)
  Sender: FDA-Public Use
  Company Number: US-ABBVIE-19K-163-3137514-00

PATIENT
  Sex: Male

DRUGS (8)
  1. IMBRUVICA [Interacting]
     Active Substance: IBRUTINIB
     Dosage: 280 MG, QD
     Route: 048
     Dates: start: 20190301
  2. IMBRUVICA [Interacting]
     Active Substance: IBRUTINIB
     Dosage: 420 MG, QD
     Route: 048
     Dates: start: 20190301
  3. IMBRUVICA [Interacting]
     Active Substance: IBRUTINIB
     Dosage: 420 MG, QD
     Route: 048
     Dates: start: 20190620
  4. PLAVIX [Interacting]
     Active Substance: CLOPIDOGREL BISULFATE
     Indication: PRODUCT USED FOR UNKNOWN INDICATION
     Dosage: UNK
     Route: 065
  5. IMBRUVICA [Suspect]
     Active Substance: IBRUTINIB
     Indication: CHRONIC LYMPHOCYTIC LEUKAEMIA
     Dosage: UNK
     Route: 048
  6. IMBRUVICA [Interacting]
     Active Substance: IBRUTINIB
     Dosage: 420 MG, QD
     Route: 048
     Dates: start: 20190328
  7. IMBRUVICA [Interacting]
     Active Substance: IBRUTINIB
     Dosage: 420 MG, QD
     Route: 048
     Dates: start: 20190425
  8. IMBRUVICA [Interacting]
     Active Substance: IBRUTINIB
     Dosage: 420 MG, QD
     Route: 048
     Dates: start: 20190227

REACTIONS (31)
  - Peripheral coldness [Unknown]
  - Fatigue [Not Recovered/Not Resolved]
  - Platelet count decreased [Recovering/Resolving]
  - Pruritus [Unknown]
  - Haemorrhage [Not Recovered/Not Resolved]
  - Flatulence [Recovered/Resolved]
  - Injury [Unknown]
  - Haemorrhage subcutaneous [Unknown]
  - Neuropathy peripheral [Unknown]
  - Bipolar I disorder [Not Recovered/Not Resolved]
  - Full blood count increased [Unknown]
  - Blood glucose abnormal [Unknown]
  - Pneumonia [Not Recovered/Not Resolved]
  - White blood cell count increased [Not Recovered/Not Resolved]
  - Limb injury [Unknown]
  - Headache [Unknown]
  - Pleural effusion [Unknown]
  - Pneumonia [Unknown]
  - Dry skin [Unknown]
  - Gastrointestinal infection [Unknown]
  - Nausea [Recovered/Resolved]
  - Confusional state [Unknown]
  - Asthenia [Not Recovered/Not Resolved]
  - Anaemia [Unknown]
  - Drug interaction [Unknown]
  - Decreased appetite [Not Recovered/Not Resolved]
  - Malaise [Unknown]
  - Infection [Not Recovered/Not Resolved]
  - Pain [Unknown]
  - Lymphadenopathy [Unknown]
  - Dyspnoea [Unknown]
